FAERS Safety Report 9463091 (Version 1)
Quarter: 2013Q3

REPORT INFORMATION
  Report Type: Report from Study
  Country: FR (occurrence: FR)
  Receive Date: 20130816
  Receipt Date: 20130816
  Transmission Date: 20140515
  Serious: Yes (Hospitalization, Other)
  Sender: FDA-Public Use
  Company Number: FR-ROCHE-1261672

PATIENT
  Age: 5 Year
  Sex: Female
  Weight: 16 kg

DRUGS (1)
  1. SOMATROPIN [Suspect]
     Indication: GROWTH HORMONE DEFICIENCY
     Dosage: SOMATROPIN 5 MG/ML
     Route: 058
     Dates: start: 20090525

REACTIONS (4)
  - Febrile convulsion [Recovered/Resolved]
  - Otitis media [Recovered/Resolved]
  - Microcytic anaemia [Unknown]
  - Thrombocytopenia [Unknown]
